FAERS Safety Report 10786124 (Version 1)
Quarter: 2015Q1

REPORT INFORMATION
  Report Type: Spontaneous
  Country: US (occurrence: US)
  Receive Date: 20150211
  Receipt Date: 20150211
  Transmission Date: 20150721
  Serious: Yes (Hospitalization)
  Sender: FDA-Public Use
  Company Number: US-SA-2015SA016875

PATIENT
  Age: 16 Year
  Sex: Female

DRUGS (4)
  1. SULFAMETHOXAZOLE AND TRIMETHOPRIM [Suspect]
     Active Substance: SULFAMETHOXAZOLE\TRIMETHOPRIM
     Indication: PROPHYLAXIS URINARY TRACT INFECTION
     Route: 065
  2. RIFAMPICIN [Suspect]
     Active Substance: RIFAMPIN
     Route: 065
  3. PRAZOSIN [Suspect]
     Active Substance: PRAZOSIN
     Route: 065
  4. IRON SULFATE [Suspect]
     Active Substance: FERROUS SULFATE ANHYDROUS
     Route: 065

REACTIONS (4)
  - Amylase increased [Recovering/Resolving]
  - Pancreatitis [Unknown]
  - Abdominal pain [Unknown]
  - Lipase increased [Recovering/Resolving]
